FAERS Safety Report 12871313 (Version 2)
Quarter: 2016Q4

REPORT INFORMATION
  Report Type: Spontaneous
  Country: TR (occurrence: TR)
  Receive Date: 20161020
  Receipt Date: 20161024
  Transmission Date: 20170207
  Serious: Yes (Death, Hospitalization, Other)
  Sender: FDA-Public Use
  Company Number: PHHY2016TR143263

PATIENT
  Age: 21 Year
  Sex: Male

DRUGS (2)
  1. DEFEROXAMINE [Suspect]
     Active Substance: DEFEROXAMINE\DEFEROXAMINE MESYLATE
     Indication: HAEMOCHROMATOSIS
     Dosage: 1 G, QD
     Route: 065
  2. FOLIC ACID. [Suspect]
     Active Substance: FOLIC ACID
     Indication: HAEMOCHROMATOSIS
     Dosage: 5 MG, QD
     Route: 065

REACTIONS (10)
  - Hepatic neoplasm [Fatal]
  - Hepatic function abnormal [Fatal]
  - Mouth haemorrhage [Fatal]
  - Multiple organ dysfunction syndrome [Unknown]
  - Ascites [Fatal]
  - Liver disorder [Fatal]
  - Nausea [Fatal]
  - Vomiting [Fatal]
  - Jaundice [Fatal]
  - Hepatomegaly [Fatal]
